FAERS Safety Report 22656050 (Version 1)
Quarter: 2023Q2

REPORT INFORMATION
  Report Type: Spontaneous
  Country: US (occurrence: US)
  Receive Date: 20230629
  Receipt Date: 20230629
  Transmission Date: 20230721
  Serious: No
  Sender: FDA-Public Use
  Company Number: US-INCYTE CORPORATION-2023IN006656

PATIENT

DRUGS (2)
  1. JAKAFI [Suspect]
     Active Substance: RUXOLITINIB
     Indication: Polycythaemia vera
     Route: 065
  2. JAKAFI [Suspect]
     Active Substance: RUXOLITINIB
     Dosage: 15 MILLIGRAM, ^MISTAKENLY HAS BEEN TAKING ONE TABLET PER DAY DURING A WHOLE WEEK. HIS ACTUAL DIRECTI
     Route: 065

REACTIONS (1)
  - Inappropriate schedule of product administration [Unknown]
